FAERS Safety Report 10404042 (Version 2)
Quarter: 2014Q3

REPORT INFORMATION
  Report Type: Spontaneous
  Country: US (occurrence: US)
  Receive Date: 20140822
  Receipt Date: 20140822
  Transmission Date: 20150326
  Serious: Yes (Other)
  Sender: FDA-Public Use
  Company Number: US-ACTELION-A-US2014-102024

PATIENT
  Age: 56 Year
  Sex: Male
  Weight: 110.66 kg

DRUGS (2)
  1. VALCHLOR [Suspect]
     Active Substance: MECHLORETHAMINE
     Indication: MYCOSIS FUNGOIDES
     Dosage: UNK UNK, QD
     Route: 061
     Dates: start: 20140430
  2. BEXAROTENE [Concomitant]
     Active Substance: BEXAROTENE
     Dosage: UNK
     Route: 048

REACTIONS (7)
  - Epidermal necrosis [Recovered/Resolved]
  - Regional chemotherapy [Recovered/Resolved]
  - Skin exfoliation [Recovered/Resolved]
  - Swelling [Recovered/Resolved]
  - Pain [Recovered/Resolved]
  - Erythema [Recovered/Resolved]
  - Hypersensitivity [Recovered/Resolved]

NARRATIVE: CASE EVENT DATE: 20140512
